FAERS Safety Report 4604450-X (Version None)
Quarter: 2005Q2

REPORT INFORMATION
  Report Type: 
  Country: None (occurrence: None)
  Receive Date: 20050215
  Receipt Date: 20041020
  Transmission Date: 20051028
  Serious: Yes (Other)
  Sender: FDA-Public Use
  Company Number: 370894

PATIENT
  Age: 41 Year
  Sex: Female
  Weight: 68.7 kg

DRUGS (2)
  1. PEGASYS [Suspect]
     Indication: HEPATITIS C
     Dosage: 1 PER WEEK SUBCUTANEOUS
     Route: 058
     Dates: start: 20040503, end: 20040610
  2. COPEGUS [Suspect]
     Indication: HEPATITIS C
     Dosage: 2 DOSE FORM  2 PER DAY  ORAL
     Route: 048
     Dates: start: 20040503, end: 20040610

REACTIONS (7)
  - BRONCHIOLITIS [None]
  - CHEST DISCOMFORT [None]
  - CHEST PAIN [None]
  - DYSPNOEA [None]
  - LUNG NEOPLASM [None]
  - OESOPHAGEAL DISORDER [None]
  - PLEURISY [None]
